FAERS Safety Report 4591511-7 (Version None)
Quarter: 2005Q1

REPORT INFORMATION
  Report Type: 
  Country: None (occurrence: None)
  Receive Date: 20050223
  Receipt Date: 20050223
  Transmission Date: 20050727
  Serious: Yes (Hospitalization)
  Sender: FDA-Public Use
  Company Number: None

PATIENT
  Sex: Male

DRUGS (15)
  1. VALSARTAN    80 MG [Suspect]
     Indication: HYPERTENSION
     Dosage: 80 MG   DAILY   ORAL
     Route: 048
  2. GLYBURIDE [Concomitant]
  3. FUROSEMIDE [Concomitant]
  4. FORMOTEROL FUMARATE [Concomitant]
  5. LEVOTHYROXINE [Concomitant]
  6. WARFARIN SODIUM [Concomitant]
  7. ROSIGLITAZONE [Concomitant]
  8. FERROUS SULFATE TAB [Concomitant]
  9. DOCUSATE, [Concomitant]
  10. TERAZOSIN HCL [Concomitant]
  11. SIMVASTATIN [Concomitant]
  12. CALCIUM CARBONATE [Concomitant]
  13. ALBUTEROL [Concomitant]
  14. IPRATROPIUM BROMIDE [Concomitant]
  15. EPOGEN [Concomitant]

REACTIONS (2)
  - DYSPNOEA [None]
  - HYPERKALAEMIA [None]
